FAERS Safety Report 7549523-7 (Version None)
Quarter: 2011Q2

REPORT INFORMATION
  Report Type: 
  Country: None (occurrence: None)
  Receive Date: 20110615
  Receipt Date: 20110610
  Transmission Date: 20111010
  Serious: Yes (Hospitalization)
  Sender: FDA-Public Use
  Company Number: A0730990A

PATIENT
  Age: 50 Year
  Sex: Male

DRUGS (2)
  1. AVANDAMET [Suspect]
     Route: 048
     Dates: start: 20010101, end: 20070521
  2. AVANDIA [Suspect]
     Route: 048

REACTIONS (5)
  - BLINDNESS [None]
  - BALANCE DISORDER [None]
  - AMNESIA [None]
  - EMBOLIC STROKE [None]
  - PAIN [None]
